FAERS Safety Report 9442950 (Version 1)
Quarter: 2013Q3

REPORT INFORMATION
  Report Type: Spontaneous
  Country: US (occurrence: None)
  Receive Date: 20130805
  Receipt Date: 20130805
  Transmission Date: 20140515
  Serious: Yes (Other)
  Sender: FDA-Public Use
  Company Number: None

PATIENT
  Age: 69 Year
  Sex: Male
  Weight: 95.26 kg

DRUGS (4)
  1. FINASTERIDE 5MG [Suspect]
     Dosage: 5 MG 1 ONCE A DAY BY MOUTH
     Route: 048
     Dates: start: 20100301
  2. RAPAFLO [Suspect]
     Dosage: 4 MG 1 ONCE A DAY. BY MOUTH
     Route: 048
     Dates: start: 20100301
  3. VIAGRA [Concomitant]
  4. MENS DAILY MULTIPLE VITAMIN [Concomitant]

REACTIONS (3)
  - Shock [None]
  - Erectile dysfunction [None]
  - Penis disorder [None]
